FAERS Safety Report 9174948 (Version 2)
Quarter: 2013Q1

REPORT INFORMATION
  Report Type: Spontaneous
  Country: US (occurrence: US)
  Receive Date: 20130320
  Receipt Date: 20130320
  Transmission Date: 20140127
  Serious: No
  Sender: FDA-Public Use
  Company Number: US-009507513-1303USA009563

PATIENT
  Age: 75 Year
  Sex: Female
  Weight: 64.4 kg

DRUGS (1)
  1. MIRALAX [Suspect]
     Indication: CONSTIPATION
     Dosage: 17 G, QD
     Route: 048
     Dates: start: 20130115, end: 20130130

REACTIONS (2)
  - Incorrect drug administration duration [Unknown]
  - Therapeutic product ineffective [Unknown]
